FAERS Safety Report 5751024-3 (Version None)
Quarter: 2008Q2

REPORT INFORMATION
  Report Type: 
  Country: None (occurrence: None)
  Receive Date: 20080528
  Receipt Date: 20080515
  Transmission Date: 20081010
  Serious: Yes (Hospitalization, Other)
  Sender: FDA-Public Use
  Company Number: US-KINGPHARMUSA00001-K200800564

PATIENT

DRUGS (12)
  1. ALTACE [Suspect]
     Dosage: 5 MG, BID
     Route: 048
     Dates: start: 20071101, end: 20080505
  2. FUROSEMIDE [Concomitant]
     Dosage: 160 MG, UNK
     Route: 048
  3. METOPROLOL TARTRATE [Concomitant]
     Dosage: 300 MG, UNK
     Route: 048
  4. LIPITOR [Concomitant]
     Dosage: 40 MG, UNK
     Route: 048
  5. PLAVIX [Concomitant]
     Dosage: 75 MG, UNK
     Route: 048
  6. NORVASC [Concomitant]
     Dosage: 20 MG, UNK
     Route: 048
  7. LOSEC                              /00661201/ [Concomitant]
     Dosage: 40 MG, UNK
     Route: 048
  8. DOCUSATE SODIUM [Concomitant]
     Indication: FAECES HARD
     Route: 048
  9. INSULIN SHORT-ACTING [Concomitant]
     Indication: DIABETES MELLITUS
     Route: 058
  10. INSULIN LONG-ACTING [Concomitant]
     Indication: DIABETES MELLITUS
     Route: 058
  11. NITROGLYCERIN [Concomitant]
     Indication: ANGINA PECTORIS
     Route: 060
  12. ASPIRIN [Concomitant]
     Route: 048

REACTIONS (3)
  - ANGINA PECTORIS [None]
  - ASTHENIA [None]
  - DYSKINESIA [None]
